FAERS Safety Report 24897766 (Version 3)
Quarter: 2025Q1

REPORT INFORMATION
  Report Type: Spontaneous
  Country: US (occurrence: US)
  Receive Date: 20250129
  Receipt Date: 20250210
  Transmission Date: 20250408
  Serious: No
  Sender: TEVA
  Company Number: US-TEVA-VS-3286016

PATIENT
  Age: 40 Year
  Sex: Female

DRUGS (1)
  1. AJOVY [Suspect]
     Active Substance: FREMANEZUMAB-VFRM
     Indication: Product used for unknown indication
     Route: 065

REACTIONS (6)
  - Injection site haemorrhage [Unknown]
  - Accidental exposure to product [Unknown]
  - Device leakage [Unknown]
  - Injection site pain [Unknown]
  - Incorrect dose administered by device [Unknown]
  - Wrong technique in product usage process [Unknown]

NARRATIVE: CASE EVENT DATE: 20250109
